FAERS Safety Report 12487505 (Version 1)
Quarter: 2016Q2

REPORT INFORMATION
  Report Type: Spontaneous
  Country: US (occurrence: US)
  Receive Date: 20160622
  Receipt Date: 20160622
  Transmission Date: 20160815
  Serious: Yes (Other)
  Sender: FDA-Public Use
  Company Number: US-SHIRE-US201607208

PATIENT
  Age: 73 Year
  Sex: Female

DRUGS (2)
  1. LIALDA [Suspect]
     Active Substance: MESALAMINE
     Indication: COLITIS
     Dosage: 1.2 G, UNKNOWN
     Route: 048
     Dates: start: 2011
  2. LIALDA [Suspect]
     Active Substance: MESALAMINE
     Dosage: 1.2 G, UNKNOWN
     Route: 048

REACTIONS (6)
  - Malaise [Recovered/Resolved]
  - Thyroid cancer [Recovered/Resolved]
  - Mass [Recovered/Resolved]
  - Lymphoma [Recovered/Resolved]
  - Drug dose omission [Recovered/Resolved]
  - Procedural pain [Recovered/Resolved]

NARRATIVE: CASE EVENT DATE: 2013
